FAERS Safety Report 7893712-9 (Version None)
Quarter: 2011Q4

REPORT INFORMATION
  Report Type: 
  Country: None (occurrence: None)
  Receive Date: 20111104
  Receipt Date: 20111025
  Transmission Date: 20120403
  Serious: Yes (Hospitalization)
  Sender: FDA-Public Use
  Company Number: JP-CELGENEUS-087-50794-11110215

PATIENT
  Sex: Male
  Weight: 52 kg

DRUGS (26)
  1. FAMOTIDINE [Concomitant]
     Route: 065
  2. RED BLOOD CELLS [Concomitant]
     Route: 065
  3. SELBEX [Concomitant]
     Route: 065
  4. ADONA [Concomitant]
     Route: 065
  5. OLOPATADINE HCL [Concomitant]
     Route: 065
  6. VFEND [Concomitant]
     Route: 065
  7. SOLU-CORTEF [Concomitant]
     Route: 065
     Dates: start: 20110712, end: 20110720
  8. PLATELETS [Concomitant]
     Route: 065
  9. CEFTAZIDIME SODIUM [Concomitant]
     Route: 065
     Dates: start: 20110720, end: 20110725
  10. CLINDAMYCIN [Concomitant]
     Route: 065
     Dates: start: 20110720, end: 20110725
  11. MEROPENEM [Concomitant]
     Route: 065
     Dates: start: 20110711, end: 20110720
  12. ZOVIRAX [Concomitant]
     Route: 065
     Dates: end: 20110706
  13. CLINDAMYCIN [Concomitant]
     Route: 065
     Dates: start: 20110707, end: 20110711
  14. VIDAZA [Suspect]
     Dosage: 75 MILLIGRAM/SQ. METER
     Route: 041
     Dates: start: 20110628, end: 20110704
  15. CEFAZOLIN SODIUM [Concomitant]
     Route: 065
  16. URSO 250 [Concomitant]
     Route: 065
  17. ALLOPURINOL [Concomitant]
     Route: 065
     Dates: end: 20110706
  18. ACETAMINOPHEN [Concomitant]
     Route: 065
     Dates: start: 20110630
  19. ZOSYN [Concomitant]
     Route: 065
     Dates: start: 20110707, end: 20110711
  20. MAXIPIME [Concomitant]
     Route: 065
     Dates: start: 20110708, end: 20110711
  21. KYTRIL [Concomitant]
     Route: 065
     Dates: start: 20110628, end: 20110704
  22. MINOCYCLINE HCL [Concomitant]
     Route: 065
     Dates: start: 20110711
  23. LEVOFLOXACIN [Concomitant]
     Route: 065
     Dates: start: 20110802
  24. BETAMETHASONE [Concomitant]
     Route: 065
     Dates: start: 20110731
  25. ISEPAMICIN [Concomitant]
     Route: 065
     Dates: start: 20110711, end: 20110720
  26. FIRSTCIN [Concomitant]
     Route: 065
     Dates: start: 20110725, end: 20110731

REACTIONS (3)
  - ACUTE FEBRILE NEUTROPHILIC DERMATOSIS [None]
  - PYREXIA [None]
  - INFECTION [None]
